FAERS Safety Report 23338945 (Version 1)
Quarter: 2023Q4

REPORT INFORMATION
  Report Type: Report from Study
  Country: US (occurrence: US)
  Receive Date: 20231226
  Receipt Date: 20231226
  Transmission Date: 20240110
  Serious: Yes (Hospitalization)
  Sender: FDA-Public Use
  Company Number: US-ABBVIE-5558968

PATIENT
  Age: 61 Year
  Sex: Female

DRUGS (1)
  1. RINVOQ [Suspect]
     Active Substance: UPADACITINIB
     Indication: Rheumatoid arthritis
     Route: 048
     Dates: start: 20220912, end: 20231215

REACTIONS (4)
  - Chest pain [Unknown]
  - Pericarditis [Unknown]
  - Dyspnoea [Unknown]
  - Pleurisy [Unknown]

NARRATIVE: CASE EVENT DATE: 20230901
